FAERS Safety Report 20690366 (Version 1)
Quarter: 2022Q2

REPORT INFORMATION
  Report Type: Report from Study
  Country: IN (occurrence: IN)
  Receive Date: 20220408
  Receipt Date: 20220408
  Transmission Date: 20220720
  Serious: Yes (Hospitalization, Other)
  Sender: FDA-Public Use
  Company Number: IN-NOVARTISPH-PHHY2019IN015955

PATIENT
  Age: 53 Year
  Sex: Male

DRUGS (16)
  1. SIMULECT [Suspect]
     Active Substance: BASILIXIMAB
     Indication: Renal transplant
     Dosage: 20 MG, UNK
     Route: 042
     Dates: start: 20190103
  2. SIMULECT [Suspect]
     Active Substance: BASILIXIMAB
     Dosage: 40 MG (2 DOSES)
     Route: 065
  3. SIMULECT [Suspect]
     Active Substance: BASILIXIMAB
     Dosage: 75 MG (3 DOSES)
     Route: 065
  4. TACROREN [Concomitant]
     Indication: Product used for unknown indication
     Dosage: 1 DOSAGE FORM, BID (8AM-8PM BEFORE FOOD)
     Route: 065
  5. IMMUTIL [Concomitant]
     Indication: Product used for unknown indication
     Dosage: 2 DOSAGE FORM, BID (8 AM -8PM) BEFORE FOOD
     Route: 065
  6. PREDNISOLONE [Concomitant]
     Active Substance: PREDNISOLONE
     Indication: Product used for unknown indication
     Dosage: 2 DOSAGE FORM (15 MG 1 TAB AT MORNING 5 MG 1 TAB AT EVENING)
     Route: 065
  7. BACTRIM DS [Concomitant]
     Active Substance: SULFAMETHOXAZOLE\TRIMETHOPRIM
     Indication: Product used for unknown indication
     Dosage: 0.5 DOSAGE FORM, QD AT 2 PM
     Route: 065
  8. SYSCAN [Concomitant]
     Indication: Product used for unknown indication
     Dosage: 1 DOSAGE FORM, QD AT 2 PM
     Route: 065
  9. LEVOTHYROXINE [Concomitant]
     Active Substance: LEVOTHYROXINE
     Indication: Product used for unknown indication
     Dosage: 1 DOSAGE FORM, QD (BEFORE BREAK FAST)
     Route: 065
  10. NIFEDIPINE [Concomitant]
     Active Substance: NIFEDIPINE
     Indication: Blood pressure increased
     Dosage: 1 DOSAGE FORM, BID
     Route: 065
  11. CREMAFFIN PLUS [Concomitant]
     Indication: Constipation
     Dosage: UNK (15 ML AT BEDTIME)
     Route: 065
  12. ATORVASTATIN CALCIUM [Concomitant]
     Active Substance: ATORVASTATIN CALCIUM
     Indication: Product used for unknown indication
     Dosage: 1 DOSAGE FORM, QD AT 9 PM
     Route: 065
  13. DOMSTAL [Concomitant]
     Indication: Product used for unknown indication
     Dosage: 1 DOSAGE FORM, BID
     Route: 065
  14. PYRIGESIC [Concomitant]
     Indication: Product used for unknown indication
     Dosage: 1 DOSAGE FORM, TID (AFTER FOOD X3DAYS, THENSOS)
     Route: 065
  15. INSULIN HUMAN [Concomitant]
     Active Substance: INSULIN HUMAN
     Indication: Product used for unknown indication
     Dosage: UNK (10 UNITS BEFORE BREAKFAST  8 UNITS BEFORE LUNCH AND 6 UNITS BEFORE DINNER)
     Route: 058
  16. ACETYLCYSTEINE [Concomitant]
     Active Substance: ACETYLCYSTEINE
     Indication: Product used for unknown indication
     Dosage: UNK
     Route: 065

REACTIONS (6)
  - Kidney transplant rejection [Unknown]
  - Renal tubular atrophy [Unknown]
  - Tubulointerstitial nephritis [Unknown]
  - Glomerulosclerosis [Unknown]
  - Oedema [Unknown]
  - Vasculitis [Unknown]

NARRATIVE: CASE EVENT DATE: 20190109
